FAERS Safety Report 7451495-0 (Version None)
Quarter: 2011Q2

REPORT INFORMATION
  Report Type: 
  Country: None (occurrence: None)
  Receive Date: 20110502
  Receipt Date: 20110425
  Transmission Date: 20111010
  Serious: Yes (Hospitalization, Other)
  Sender: FDA-Public Use
  Company Number: US-AMGEN-USASP2011014015

PATIENT
  Age: 63 Year
  Sex: Female
  Weight: 50.794 kg

DRUGS (25)
  1. PROLIA [Suspect]
     Indication: OSTEOPOROSIS POSTMENOPAUSAL
     Dosage: 60 MG, Q6MO
     Route: 058
     Dates: start: 20100902
  2. CALCIUM CARBONATE/VITAMIN D3 [Concomitant]
     Dosage: 500 MG, BID
     Route: 048
  3. HYDROCODONE BITARTRATE AND ACETAMINOPHEN [Concomitant]
  4. LEVETIRACETAM [Concomitant]
  5. OXYCODONE HCL [Concomitant]
  6. CLOBETASOL PROPIONATE [Concomitant]
     Dosage: UNK UNK, QD
  7. CYCLOSPORINE [Concomitant]
     Dosage: 0.05 %, BID
     Route: 047
  8. TRIAMTERENE AND HYDROCHLOROTHIAZID [Concomitant]
  9. VENLAFAXINE HCL [Concomitant]
  10. LUBIPROSTONE [Concomitant]
  11. FLAXSEED OIL [Concomitant]
  12. VITAMIN B COMPLEX                  /00003501/ [Concomitant]
  13. PROLIA [Suspect]
  14. ESZOPICLONE [Concomitant]
  15. OXYCODONE AND ACETAMINOPHEN [Concomitant]
  16. POLYETHYLENE GLYCOL [Concomitant]
  17. METHADONE HCL [Concomitant]
  18. ASCORBIC ACID [Concomitant]
     Dosage: 500 MG, QD
     Route: 048
  19. IBUPROFEN [Concomitant]
  20. MAGNESIUM OXIDE [Concomitant]
  21. METHOCARBAMOL [Concomitant]
  22. CHOLECALCIFEROL [Concomitant]
     Dosage: 400 IU, BID
     Route: 048
  23. DOCUSATE SODIUM [Concomitant]
  24. NAPROXEN [Concomitant]
  25. LOVAZA [Concomitant]

REACTIONS (3)
  - POST PROCEDURAL HAEMORRHAGE [None]
  - FEMALE GENITAL TRACT FISTULA [None]
  - VAGINAL CYST [None]
